FAERS Safety Report 7937795-6 (Version None)
Quarter: 2011Q4

REPORT INFORMATION
  Report Type: 
  Country: None (occurrence: None)
  Receive Date: 20111123
  Receipt Date: 20111117
  Transmission Date: 20120403
  Serious: Yes (Hospitalization)
  Sender: FDA-Public Use
  Company Number: US-ABBOTT-11P-163-0875610-00

PATIENT
  Sex: Female

DRUGS (3)
  1. CORTISONE ACETATE [Suspect]
     Indication: PRODUCT USED FOR UNKNOWN INDICATION
  2. HUMIRA [Suspect]
     Indication: RHEUMATOID ARTHRITIS
     Route: 058
     Dates: start: 20110801
  3. HUMIRA [Suspect]
     Route: 058
     Dates: start: 20111118

REACTIONS (2)
  - PRODUCT DEPOSIT [None]
  - JOINT EFFUSION [None]
